FAERS Safety Report 4377793-5 (Version None)
Quarter: 2004Q2

REPORT INFORMATION
  Report Type: 
  Country: None (occurrence: None)
  Receive Date: 20040614
  Receipt Date: 20040614
  Transmission Date: 20050107
  Serious: Yes (Hospitalization)
  Sender: FDA-Public Use
  Company Number: None

PATIENT
  Age: 70 Year
  Sex: Female
  Weight: 81 kg

DRUGS (15)
  1. OXALIPLATIN [Suspect]
     Dosage: 45MG/M2 = 87MG Q WK D 1 IV
     Route: 042
     Dates: start: 20040426, end: 20040524
  2. OXALIPLATIN [Suspect]
  3. FLUOROURACIL [Suspect]
     Dosage: 300MG/M2 579MG = WEEK 4 IV X 5
     Route: 042
     Dates: start: 20040426, end: 20040528
  4. FLUOROURACIL [Suspect]
  5. FLUOROURACIL [Suspect]
  6. FLUOROURACIL [Suspect]
  7. COZAAR [Concomitant]
  8. ZESTRIL [Concomitant]
  9. GLYBURIDE [Concomitant]
  10. ACIPHEX [Concomitant]
  11. PREMARIN [Concomitant]
  12. CELEXA [Concomitant]
  13. LORAZEPAM [Concomitant]
  14. HYDROCODONE [Concomitant]
  15. PROMETHAZINE [Concomitant]

REACTIONS (2)
  - NAUSEA [None]
  - VOMITING [None]
